FAERS Safety Report 4705706-2 (Version None)
Quarter: 2005Q2

REPORT INFORMATION
  Report Type: 
  Country: None (occurrence: None)
  Receive Date: 20050629
  Receipt Date: 20050621
  Transmission Date: 20051028
  Serious: Yes (Hospitalization)
  Sender: FDA-Public Use
  Company Number: 2005091460

PATIENT
  Age: 61 Year
  Sex: Female
  Weight: 98 kg

DRUGS (6)
  1. SULFASALAZINE [Suspect]
     Indication: ILL-DEFINED DISORDER
     Dates: start: 20040417, end: 20050517
  2. ACETAMINOPHEN [Concomitant]
  3. LVEOTHYROXINE SODIUM (LEVOTHYROXINE SODIUM) [Concomitant]
  4. XALACOM (LATANOPROST, TIMOLOL) [Concomitant]
  5. AMPHOTERICIN B (AMPHOTHERICIN B) [Concomitant]
  6. PROPRANOLOL [Concomitant]

REACTIONS (9)
  - ANTIBODY TEST POSITIVE [None]
  - CHOLESTASIS [None]
  - CYTOLYTIC HEPATITIS [None]
  - DRUG RASH WITH EOSINOPHILIA AND SYSTEMIC SYMPTOMS [None]
  - FACE OEDEMA [None]
  - PRODUCTIVE COUGH [None]
  - RASH MACULO-PAPULAR [None]
  - RASH MORBILLIFORM [None]
  - SPUTUM PURULENT [None]
